FAERS Safety Report 9841975 (Version 1)
Quarter: 2014Q1

REPORT INFORMATION
  Report Type: Spontaneous
  Country: US (occurrence: US)
  Receive Date: 20140124
  Receipt Date: 20140124
  Transmission Date: 20141002
  Serious: No
  Sender: FDA-Public Use
  Company Number: US-BAUSCH-BL-2013-006798

PATIENT
  Age: 69 Year
  Sex: Female
  Weight: 67.19 kg

DRUGS (2)
  1. PROLENSA (BROMFENAC OPHTHALMIC SOLUTION) 0.07% [Suspect]
     Indication: POSTOPERATIVE CARE
     Dosage: DROP; RIGHT EYE
     Route: 047
  2. NIASPAN [Concomitant]

REACTIONS (2)
  - Instillation site pain [Recovered/Resolved]
  - Scleral haemorrhage [Not Recovered/Not Resolved]
